FAERS Safety Report 15696210 (Version 1)
Quarter: 2018Q4

REPORT INFORMATION
  Report Type: Spontaneous
  Country: US (occurrence: US)
  Receive Date: 20181206
  Receipt Date: 20181206
  Transmission Date: 20190205
  Serious: No
  Sender: FDA-Public Use
  Company Number: US-ACTELION-A-NJ2018-182879

PATIENT
  Age: 71 Year
  Sex: Female

DRUGS (1)
  1. OPSUMIT [Suspect]
     Active Substance: MACITENTAN
     Indication: PULMONARY ARTERIAL HYPERTENSION
     Dosage: 1600 MG, BID
     Route: 048
     Dates: start: 20180218

REACTIONS (5)
  - Nasal congestion [Unknown]
  - Dizziness [Unknown]
  - Joint swelling [Unknown]
  - Abdominal pain [Unknown]
  - Cough [Unknown]
